FAERS Safety Report 5167653-4 (Version None)
Quarter: 2006Q4

REPORT INFORMATION
  Report Type: 
  Country: None (occurrence: None)
  Receive Date: 20061201
  Receipt Date: 20061201
  Transmission Date: 20070319
  Serious: Yes (Hospitalization)
  Sender: FDA-Public Use
  Company Number: None

PATIENT
  Age: 62 Year
  Sex: Male
  Weight: 74.8435 kg

DRUGS (15)
  1. NAPROXEN [Suspect]
     Indication: BACK PAIN
     Dosage: 500 MG BID PO
     Route: 048
     Dates: start: 20061101, end: 20061119
  2. NAPROXEN [Suspect]
     Indication: SCIATICA
     Dosage: 500 MG BID PO
     Route: 048
     Dates: start: 20061101, end: 20061119
  3. ASPIRIN [Suspect]
     Indication: CEREBROVASCULAR ACCIDENT
     Dosage: 325 MG DAILY PO
     Route: 048
  4. ASPIRIN [Concomitant]
  5. ATENOLOL [Concomitant]
  6. CAPSAICIN CREAM [Concomitant]
  7. DOXEPIN HCL [Concomitant]
  8. GABAPENTIN [Concomitant]
  9. HYDROCODONE BITARTRATE [Concomitant]
  10. METHOCARBAMOL [Concomitant]
  11. NAPROXEN [Concomitant]
  12. OXYCODONE HCL [Concomitant]
  13. SERTRALINE HYDROCHLORIDE [Concomitant]
  14. TERAZOSIN HCL [Concomitant]
  15. THIAMINE [Concomitant]

REACTIONS (9)
  - ANAEMIA [None]
  - ANGINA PECTORIS [None]
  - CHEST PAIN [None]
  - DUODENAL ULCER [None]
  - DUODENITIS [None]
  - GASTRITIS [None]
  - MELAENA [None]
  - OESOPHAGITIS [None]
  - UPPER GASTROINTESTINAL HAEMORRHAGE [None]
